FAERS Safety Report 4317443-7 (Version None)
Quarter: 2004Q1

REPORT INFORMATION
  Report Type: 
  Country: None (occurrence: None)
  Receive Date: 20040312
  Receipt Date: 20040301
  Transmission Date: 20041129
  Serious: Yes (Death, Hospitalization)
  Sender: FDA-Public Use
  Company Number: 2004AP01397

PATIENT
  Age: 77 Year
  Sex: Female

DRUGS (9)
  1. IRESSA [Suspect]
     Indication: NON-SMALL CELL LUNG CANCER
     Dosage: 250 MG DAILY PO
     Route: 048
     Dates: start: 20030818, end: 20030903
  2. PURSENNID [Concomitant]
  3. NAIXAN [Concomitant]
  4. FULCALIQ [Concomitant]
  5. SOLITA T [Concomitant]
  6. 10% CHLORIDE SODIUM [Concomitant]
  7. PRIMPERAN INJ [Concomitant]
  8. GASMOTIN [Concomitant]
  9. MUCOSTA [Concomitant]

REACTIONS (6)
  - DELIRIUM [None]
  - GAMMA-GLUTAMYLTRANSFERASE INCREASED [None]
  - HEPATIC FUNCTION ABNORMAL [None]
  - INSOMNIA [None]
  - PAIN [None]
  - PNEUMONIA BACTERIAL [None]
